FAERS Safety Report 18683771 (Version 3)
Quarter: 2021Q2

REPORT INFORMATION
  Report Type: Spontaneous
  Country: US (occurrence: US)
  Receive Date: 20201230
  Receipt Date: 20210602
  Transmission Date: 20210717
  Serious: Yes (Other)
  Sender: FDA-Public Use
  Company Number: US-PFIZER INC-2020516046

PATIENT
  Age: 64 Year
  Sex: Female
  Weight: 86.18 kg

DRUGS (3)
  1. DILTIAZEM. [Concomitant]
     Active Substance: DILTIAZEM
     Indication: HYPERTENSION
     Dosage: 30 MG, 2X/DAY
     Dates: start: 2019
  2. PREMARIN [Suspect]
     Active Substance: ESTROGENS, CONJUGATED
     Indication: MENOPAUSAL SYMPTOMS
     Dosage: 1 UNK
     Dates: start: 2018
  3. PREMARIN [Suspect]
     Active Substance: ESTROGENS, CONJUGATED
     Indication: VAGINAL DISORDER
     Dosage: 0.5 UNK (PRESCRIBED: 1.0, AND WAS NOW AT A PREMARIN VAGINAL CREAM DOSAGE OF 0.5)
     Dates: start: 202104

REACTIONS (5)
  - Deafness [Unknown]
  - Eczema [Unknown]
  - Intentional product misuse [Recovering/Resolving]
  - Therapeutic response unexpected [Unknown]
  - Weight increased [Unknown]

NARRATIVE: CASE EVENT DATE: 202104
